FAERS Safety Report 8676138 (Version 2)
Quarter: 2012Q4

REPORT INFORMATION
  Report Type: 
  Country: DE (occurrence: DE)
  Receive Date: 20120720
  Receipt Date: 20120907
  Transmission Date: 20130627
  Serious: No
  Sender: FDA-Public Use
  Company Number: DE-009507513-1207DEU004760

PATIENT

DRUGS (7)
  1. MIRTAZAPINE [Suspect]
     Indication: DEPRESSION
     Dosage: 45 mg, qd
     Route: 048
     Dates: start: 20120514, end: 20120612
  2. DIPIPERON [Suspect]
     Indication: DEPRESSION
     Dosage: 40 mg, qd
     Route: 048
     Dates: start: 20120427, end: 20120612
  3. BUPROPION HYDROCHLORIDE [Suspect]
     Indication: DEPRESSION
     Dosage: 150 mg, qd
     Route: 048
     Dates: start: 20120531, end: 20120612
  4. IBUPROFEN [Concomitant]
     Dosage: 400 mg, tid
     Route: 048
     Dates: end: 20120527
  5. PANTOZOL [Concomitant]
     Dosage: 20 mg, qd
     Route: 048
     Dates: end: 20120527
  6. ACETYLCYSTEINE [Concomitant]
     Dosage: 1 DF, qd
     Route: 048
     Dates: end: 20120527
  7. NEO-ANGIN (AMYLMETACRESOL (+) DICHLOROBENZYL ALCOHOL (+) MENTHOL) [Concomitant]
     Dosage: 5 DF, qd
     Route: 048
     Dates: end: 20120527

REACTIONS (4)
  - Blood creatine phosphokinase increased [Recovered/Resolved]
  - Aspartate aminotransferase increased [Recovered/Resolved]
  - Alanine aminotransferase increased [Recovered/Resolved]
  - Increased appetite [Unknown]
